FAERS Safety Report 10613265 (Version 1)
Quarter: 2014Q4

REPORT INFORMATION
  Report Type: Spontaneous
  Country: US (occurrence: US)
  Receive Date: 20141128
  Receipt Date: 20141128
  Transmission Date: 20150529
  Serious: Yes (Other)
  Sender: FDA-Public Use
  Company Number: US-BEH-2014046637

PATIENT
  Age: 30 Year
  Sex: Female
  Weight: 78 kg

DRUGS (25)
  1. HIZENTRA [Suspect]
     Active Substance: HUMAN IMMUNOGLOBULIN G
     Indication: IMMUNODEFICIENCY COMMON VARIABLE
     Dosage: 4 GM 20 ML VIAL;
     Route: 058
  2. AUGMENTIN [Concomitant]
     Active Substance: AMOXICILLIN\CLAVULANATE POTASSIUM
  3. METHOTREXATE [Concomitant]
     Active Substance: METHOTREXATE
  4. LIDOCAINE. [Concomitant]
     Active Substance: LIDOCAINE
  5. LIDOCAINE/PRILOCAINE [Concomitant]
  6. PREDNISONE. [Concomitant]
     Active Substance: PREDNISONE
  7. VITAMIN D [Concomitant]
     Active Substance: CHOLECALCIFEROL
  8. BACTRIM DS [Concomitant]
     Active Substance: SULFAMETHOXAZOLE\TRIMETHOPRIM
  9. AMBIEN CR [Concomitant]
     Active Substance: ZOLPIDEM TARTRATE
  10. SYNTHROID [Concomitant]
     Active Substance: LEVOTHYROXINE SODIUM
  11. METFORMIN [Concomitant]
     Active Substance: METFORMIN HYDROCHLORIDE
  12. DICLOFENAC [Concomitant]
     Active Substance: DICLOFENAC
  13. SINGULAIR [Concomitant]
     Active Substance: MONTELUKAST SODIUM
  14. PEPCID [Concomitant]
     Active Substance: FAMOTIDINE
  15. VITAMIN B COMPLEX [Concomitant]
     Active Substance: CYANOCOBALAMIN\DEXPANTHENOL\NIACINAMIDE\PYRIDOXINE HYDROCHLORIDE\RIBOFLAVIN 5^-PHOSPHATE SODIUM\THIAMINE HYDROCHLORIDE\VITAMIN B COMPLEX
  16. ALL OTHER THERAPEUTIC PRODUCTS [Concomitant]
     Active Substance: UNSPECIFIED INGREDIENT
  17. EPIPEN [Concomitant]
     Active Substance: EPINEPHRINE
  18. CYMBALTA [Concomitant]
     Active Substance: DULOXETINE HYDROCHLORIDE
  19. FISH OIL [Concomitant]
     Active Substance: FISH OIL
  20. ALL OTHER THERAPEUTIC PRODUCTS [Concomitant]
     Active Substance: UNSPECIFIED INGREDIENT
  21. ALL OTHER THERAPEUTIC PRODUCTS [Concomitant]
     Active Substance: UNSPECIFIED INGREDIENT
  22. BISOPROLOL FUMARATE. [Concomitant]
     Active Substance: BISOPROLOL FUMARATE
  23. REQUIP [Concomitant]
     Active Substance: ROPINIROLE HYDROCHLORIDE
  24. CALCIUM [Concomitant]
     Active Substance: CALCIUM
  25. MULTIVITAMIN [Concomitant]
     Active Substance: VITAMINS

REACTIONS (1)
  - Deep vein thrombosis [Unknown]

NARRATIVE: CASE EVENT DATE: 20141031
